FAERS Safety Report 5125577-2 (Version None)
Quarter: 2006Q4

REPORT INFORMATION
  Report Type: 
  Country: None (occurrence: None)
  Receive Date: 20061012
  Receipt Date: 20061001
  Transmission Date: 20070319
  Serious: Yes (Other)
  Sender: FDA-Public Use
  Company Number: PHEH2006US12426

PATIENT
  Age: 48 Year
  Sex: Female

DRUGS (1)
  1. LAMISIL [Suspect]
     Indication: NAIL TINEA
     Dosage: 250 MG, QD
     Route: 048
     Dates: start: 20060501, end: 20060701

REACTIONS (4)
  - BLINDNESS [None]
  - DIABETES MELLITUS [None]
  - TREATMENT NONCOMPLIANCE [None]
  - VISION BLURRED [None]
